FAERS Safety Report 7396756-9 (Version None)
Quarter: 2011Q2

REPORT INFORMATION
  Report Type: 
  Country: None (occurrence: None)
  Receive Date: 20110406
  Receipt Date: 20110404
  Transmission Date: 20111010
  Serious: Yes (Disabling)
  Sender: FDA-Public Use
  Company Number: JP-ABBOTT-10P-087-0691264-00

PATIENT
  Age: 83 Year
  Sex: Male

DRUGS (4)
  1. BICALUTAMIDE [Concomitant]
     Indication: PROSTATE CANCER STAGE I
     Route: 048
     Dates: start: 20061222
  2. PURSENNID [Concomitant]
     Indication: CONSTIPATION
     Route: 048
  3. MICARDIS [Concomitant]
     Indication: HYPERTENSION
     Route: 048
     Dates: end: 20080826
  4. LEUPLIN SR FOR INJECTION 11.25 MG [Suspect]
     Indication: PROSTATE CANCER STAGE I
     Route: 058
     Dates: start: 20061222

REACTIONS (3)
  - HYPERTENSION [None]
  - CEREBRAL INFARCTION [None]
  - GASTRIC ULCER [None]
